FAERS Safety Report 20680674 (Version 1)
Quarter: 2022Q2

REPORT INFORMATION
  Report Type: Spontaneous
  Country: US (occurrence: US)
  Receive Date: 20220406
  Receipt Date: 20220406
  Transmission Date: 20220721
  Serious: Yes (Other)
  Sender: FDA-Public Use
  Company Number: US-INCYTE CORPORATION-2022IN003204

PATIENT

DRUGS (1)
  1. JAKAFI [Suspect]
     Active Substance: RUXOLITINIB
     Indication: T-cell lymphoma
     Dosage: 2.5 MILLIGRAM, BID
     Route: 048

REACTIONS (3)
  - Coeliac disease [Unknown]
  - Off label use [Unknown]
  - Wrong technique in product usage process [Unknown]
